FAERS Safety Report 7638323-5 (Version None)
Quarter: 2011Q3

REPORT INFORMATION
  Report Type: 
  Country: None (occurrence: None)
  Receive Date: 20110727
  Receipt Date: 20110727
  Transmission Date: 20111222
  Serious: Yes (Other)
  Sender: FDA-Public Use
  Company Number: None

PATIENT
  Age: 67 Year
  Sex: Female
  Weight: 72.574 kg

DRUGS (2)
  1. MEPIVACAINE HCL [Concomitant]
  2. ROPIVACAINE HYDROCHLORIDE [Suspect]

REACTIONS (3)
  - APHASIA [None]
  - CLONUS [None]
  - DYSKINESIA [None]
